FAERS Safety Report 5313734-1 (Version None)
Quarter: 2007Q2

REPORT INFORMATION
  Report Type: 
  Country: None (occurrence: None)
  Receive Date: 20070425
  Receipt Date: 20070423
  Transmission Date: 20071010
  Serious: Yes (Death)
  Sender: FDA-Public Use
  Company Number: TCI2007A02010

PATIENT
  Age: 48 Year
  Sex: Female

DRUGS (1)
  1. LANSOPRAZOLE [Suspect]
     Indication: ULCER HAEMORRHAGE
     Dosage: 30 MG (30 MG, 1 D) INTRAVENOUS
     Route: 042
     Dates: start: 20070320, end: 20070416

REACTIONS (1)
  - BREAST CANCER FEMALE [None]
